FAERS Safety Report 22160753 (Version 1)
Quarter: 2023Q1

REPORT INFORMATION
  Report Type: Spontaneous
  Country: CN (occurrence: CN)
  Receive Date: 20230331
  Receipt Date: 20230331
  Transmission Date: 20230418
  Serious: Yes (Other)
  Sender: FDA-Public Use
  Company Number: CN-SUN PHARMACEUTICAL INDUSTRIES LTD-2022R1-358160

PATIENT
  Age: 50 Year
  Sex: Male

DRUGS (2)
  1. ERLOTINIB [Suspect]
     Active Substance: ERLOTINIB
     Indication: Adenocarcinoma
     Dosage: 100 MILLIGRAM, QD
     Route: 065
     Dates: start: 20170814
  2. GEMCITABINE [Suspect]
     Active Substance: GEMCITABINE
     Indication: Adenocarcinoma
     Dosage: 1.4 G (1000 MG/M2, ON DAYS 1 AND 8)
     Route: 065
     Dates: start: 20170814

REACTIONS (6)
  - Malignant neoplasm progression [Unknown]
  - Rash [Recovered/Resolved]
  - Diarrhoea [Unknown]
  - Sensory disturbance [Unknown]
  - Erythema [Unknown]
  - Oedema [Unknown]

NARRATIVE: CASE EVENT DATE: 20180201
